FAERS Safety Report 5032347-2 (Version None)
Quarter: 2006Q2

REPORT INFORMATION
  Report Type: 
  Country: None (occurrence: None)
  Receive Date: 20060508
  Receipt Date: 20060216
  Transmission Date: 20061013
  Serious: Yes (Other)
  Sender: FDA-Public Use
  Company Number: 230918K06USA

PATIENT
  Age: 65 Year
  Sex: Female

DRUGS (15)
  1. REBIF [Suspect]
     Indication: MULTIPLE SCLEROSIS
     Dosage: 44 MCG, 3 IN 1 WEEKS, SUBCUTANEOUS
     Route: 058
     Dates: start: 20031212, end: 20040210
  2. DIOVAN/HCT (CO-DIOVAN) [Concomitant]
  3. TOPROL-XL [Concomitant]
  4. PLENDIL [Concomitant]
  5. NEXIUM [Concomitant]
  6. ULTRAM [Concomitant]
  7. VALIUM [Concomitant]
  8. PROZAC [Concomitant]
  9. LESCOL (FLUVASTATIN /012245501/) [Concomitant]
  10. CELEBREX [Concomitant]
  11. ASPIRIN [Concomitant]
  12. NTG (GLYCERYL TRINITRATE) [Concomitant]
  13. K (PHYTOMENADIONE) [Concomitant]
  14. WELLBUTRIN [Concomitant]
  15. ROBAXIN [Concomitant]

REACTIONS (1)
  - HEPATIC ENZYME INCREASED [None]
